FAERS Safety Report 5270104-2 (Version None)
Quarter: 2007Q1

REPORT INFORMATION
  Report Type: 
  Country: None (occurrence: None)
  Receive Date: 20070320
  Receipt Date: 20070307
  Transmission Date: 20070707
  Serious: Yes (Other)
  Sender: FDA-Public Use
  Company Number: IE-ELI_LILLY_AND_COMPANY-IE200703001455

PATIENT
  Age: 74 Year
  Sex: Female

DRUGS (7)
  1. CYMBALTA [Suspect]
     Dosage: 30 MG, UNK
  2. CARDURA [Concomitant]
  3. MOVICOL [Concomitant]
  4. COMTESS [Concomitant]
  5. LACTULOSE [Concomitant]
  6. MIRTAZAPINE [Concomitant]
  7. MADOPAR [Concomitant]

REACTIONS (3)
  - HAEMATURIA [None]
  - RASH [None]
  - RASH ERYTHEMATOUS [None]
